FAERS Safety Report 17433100 (Version 2)
Quarter: 2020Q1

REPORT INFORMATION
  Report Type: Spontaneous
  Country: US (occurrence: US)
  Receive Date: 20200219
  Receipt Date: 20200225
  Transmission Date: 20200409
  Serious: Yes (Other)
  Sender: FDA-Public Use
  Company Number: US-ASTRAZENECA-2020SE15715

PATIENT
  Sex: Male
  Weight: 83.9 kg

DRUGS (5)
  1. INVOKANA [Suspect]
     Active Substance: CANAGLIFLOZIN
     Indication: DIABETES MELLITUS
     Dosage: 300.0MG UNKNOWN
     Route: 065
     Dates: start: 20190916, end: 20191223
  2. INSULIN [Concomitant]
     Active Substance: INSULIN NOS
  3. DIFLUCAN [Concomitant]
     Active Substance: FLUCONAZOLE
  4. FARXIGA [Suspect]
     Active Substance: DAPAGLIFLOZIN PROPANEDIOL
     Dosage: 5.0MG UNKNOWN
     Route: 048
  5. METFORMIN [Concomitant]
     Active Substance: METFORMIN HYDROCHLORIDE

REACTIONS (3)
  - Urinary tract infection fungal [Unknown]
  - Fungal infection [Unknown]
  - Genital candidiasis [Recovered/Resolved]

NARRATIVE: CASE EVENT DATE: 20191223
